FAERS Safety Report 6703434-5 (Version None)
Quarter: 2010Q2

REPORT INFORMATION
  Report Type: 
  Country: None (occurrence: None)
  Receive Date: 20100430
  Receipt Date: 20100416
  Transmission Date: 20101027
  Serious: Yes (Other)
  Sender: FDA-Public Use
  Company Number: US-RANBAXY-2010US-30907

PATIENT

DRUGS (3)
  1. VERAPAMIL [Suspect]
     Indication: CLUSTER HEADACHE
     Dosage: 240 MG, QD
     Route: 048
     Dates: start: 20011119
  2. VERAPAMIL [Suspect]
     Dosage: 200 MG, QD
  3. VERAPAMIL [Suspect]
     Dosage: 120-480 MG, DAILY
     Route: 048
     Dates: start: 20001201, end: 20010901

REACTIONS (2)
  - ANGIOCENTRIC LYMPHOMA [None]
  - OFF LABEL USE [None]
